FAERS Safety Report 14321874 (Version 2)
Quarter: 2018Q1

REPORT INFORMATION
  Report Type: Spontaneous
  Country: AR (occurrence: AR)
  Receive Date: 20171225
  Receipt Date: 20180116
  Transmission Date: 20180509
  Serious: Yes (Hospitalization)
  Sender: FDA-Public Use
  Company Number: AR-ABBVIE-17K-007-2204052-00

PATIENT
  Age: 39 Year
  Sex: Male

DRUGS (1)
  1. HUMIRA [Suspect]
     Active Substance: ADALIMUMAB
     Indication: PSORIATIC ARTHROPATHY
     Route: 058
     Dates: start: 2015, end: 20170316

REACTIONS (2)
  - Generalised tonic-clonic seizure [Recovered/Resolved]
  - Psoriatic arthropathy [Recovering/Resolving]

NARRATIVE: CASE EVENT DATE: 20170316
